FAERS Safety Report 19101033 (Version 4)
Quarter: 2021Q2

REPORT INFORMATION
  Report Type: Report from Study
  Country: DE (occurrence: DE)
  Receive Date: 20210407
  Receipt Date: 20210429
  Transmission Date: 20210717
  Serious: Yes (Hospitalization)
  Sender: FDA-Public Use
  Company Number: NVSC2021DE072986

PATIENT
  Age: 65 Year
  Sex: Male
  Weight: 60.8 kg

DRUGS (57)
  1. BETAMETHASONE. [Concomitant]
     Active Substance: BETAMETHASONE
     Indication: DERMATITIS
     Dosage: 0.64 MG
     Route: 065
     Dates: start: 20210324, end: 20210330
  2. BETAMETHASONE DIPROPIONATE. [Concomitant]
     Active Substance: BETAMETHASONE DIPROPIONATE
     Indication: ERYTHEMA NODOSUM
     Dosage: UNK
     Route: 065
     Dates: start: 20200801, end: 20210318
  3. LOPERAMIDE HYDROCHLORIDE. [Concomitant]
     Active Substance: LOPERAMIDE HYDROCHLORIDE
     Indication: DIARRHOEA
     Dosage: UNK
     Route: 065
     Dates: start: 20210319, end: 20210413
  4. ACICLOVIR [Concomitant]
     Active Substance: ACYCLOVIR
     Dosage: UNK
     Route: 065
     Dates: start: 20210401, end: 20210413
  5. ENOXAPARIN [Concomitant]
     Active Substance: ENOXAPARIN
     Dosage: UNK
     Route: 065
     Dates: start: 20210402, end: 20210403
  6. SALBUTAMOL [Concomitant]
     Active Substance: ALBUTEROL
     Indication: DYSPNOEA
     Dosage: UNK
     Route: 065
     Dates: start: 20210401, end: 20210404
  7. PARACETAMOL [Concomitant]
     Active Substance: ACETAMINOPHEN
     Indication: PYREXIA
     Dosage: UNK
     Route: 065
     Dates: start: 20210316, end: 20210329
  8. ELEKTROLYT 153 [Concomitant]
     Indication: PROPHYLAXIS
     Dosage: UNK
     Route: 065
     Dates: start: 20210330, end: 20210402
  9. FREKAVIT WASSERLOESLICH [Concomitant]
     Active Substance: ASCORBIC ACID\BIOTIN\CYANOCOBALAMIN\FOLIC ACID\NIACINAMIDE\PANTOTHENIC ACID\PYRIDOXINE\RIBOFLAVIN\THIAMINE
     Indication: PARENTERAL NUTRITION
     Dosage: UNK
     Route: 065
     Dates: start: 20210330, end: 20210330
  10. SODIUM PHOSPHATE [Concomitant]
     Active Substance: SODIUM PHOSPHATE
     Indication: HYPOPHOSPHATAEMIA
     Dosage: UNK
     Route: 065
     Dates: start: 20210330, end: 20210330
  11. METOCLOPRAMID [Concomitant]
     Active Substance: METOCLOPRAMIDE
     Indication: NAUSEA
     Dosage: UNK
     Route: 065
     Dates: start: 20210401, end: 20210413
  12. MOVICOL [Concomitant]
     Active Substance: POLYETHYLENE GLYCOL 3350\POTASSIUM CHLORIDE\SODIUM BICARBONATE\SODIUM CHLORIDE
     Indication: CONSTIPATION
     Dosage: UNK
     Route: 065
     Dates: start: 20210401, end: 20210413
  13. ZOPICLON [Concomitant]
     Active Substance: ZOPICLONE
     Indication: SLEEP DISORDER
     Dosage: UNK
     Route: 065
     Dates: start: 20210401, end: 20210413
  14. ATROVENT [Concomitant]
     Active Substance: IPRATROPIUM BROMIDE
     Indication: DYSPNOEA
     Dosage: UNK
     Route: 065
     Dates: start: 20210401, end: 20210404
  15. XYLOCAIN [Concomitant]
     Indication: BIOPSY
     Dosage: 2 %, UNK
     Route: 065
     Dates: start: 20210309, end: 20210309
  16. PANTOPRAZOL [Concomitant]
     Active Substance: PANTOPRAZOLE SODIUM
     Dosage: UNK
     Route: 065
     Dates: start: 20210403, end: 20210413
  17. COTRIM FORTE [Concomitant]
     Active Substance: SULFAMETHOXAZOLE\TRIMETHOPRIM
     Indication: ANTIFUNGAL PROPHYLAXIS
     Dosage: UNK
     Route: 065
     Dates: start: 20210324, end: 20210330
  18. AMOXICILLIN. [Concomitant]
     Active Substance: AMOXICILLIN
     Indication: PYREXIA
     Dosage: UNK
     Route: 065
     Dates: start: 20210316, end: 20210323
  19. ADVANTAN [Concomitant]
     Active Substance: METHYLPREDNISOLONE ACEPONATE
     Indication: DERMATITIS
     Dosage: 0.1 % UNK
     Route: 065
     Dates: start: 20210319, end: 20210321
  20. POTASSIUM CHLORIDE. [Concomitant]
     Active Substance: POTASSIUM CHLORIDE
     Indication: FLUSHING
     Dosage: 50 MMOL
     Route: 065
     Dates: start: 20210330, end: 20210331
  21. CLEXANE [Concomitant]
     Active Substance: ENOXAPARIN SODIUM
     Dosage: UNK
     Route: 065
     Dates: start: 20210404, end: 20210404
  22. LASIX [Concomitant]
     Active Substance: FUROSEMIDE
     Indication: WEIGHT INCREASED
     Dosage: UNK
     Route: 065
     Dates: start: 20210401, end: 20210413
  23. ADRENALIN [Concomitant]
     Active Substance: EPINEPHRINE
     Indication: CARDIOVASCULAR INSUFFICIENCY
     Dosage: UNK
     Route: 065
     Dates: start: 20210402, end: 20210402
  24. DIMETINDENE [Concomitant]
     Active Substance: DIMETHINDENE
     Indication: DRUG HYPERSENSITIVITY
     Dosage: UNK
     Route: 065
     Dates: start: 20210330, end: 20210330
  25. RINETERKIB. [Suspect]
     Active Substance: RINETERKIB
     Indication: COLORECTAL CANCER
     Dosage: UNK
     Route: 048
     Dates: start: 20210316
  26. PARACETAMOL [Concomitant]
     Active Substance: ACETAMINOPHEN
     Indication: PAIN
     Dosage: UNK
     Route: 065
     Dates: start: 20210330, end: 20210330
  27. ACICLOVIR [Concomitant]
     Active Substance: ACYCLOVIR
     Dosage: UNK
     Route: 065
     Dates: start: 20210331, end: 20210331
  28. FREKAVIT WASSERLOESLICH [Concomitant]
     Active Substance: ASCORBIC ACID\BIOTIN\CYANOCOBALAMIN\FOLIC ACID\NIACINAMIDE\PANTOTHENIC ACID\PYRIDOXINE\RIBOFLAVIN\THIAMINE
     Dosage: UNK
     Route: 065
     Dates: start: 20210402, end: 20210402
  29. FREKAVIT FETTLOESLICH [Concomitant]
     Active Substance: .ALPHA.-TOCOPHEROL\ERGOCALCIFEROL\PHYTONADIONE\VITAMIN A
     Dosage: UNK
     Route: 065
     Dates: start: 20210402, end: 20210402
  30. VOMEX A [Concomitant]
     Active Substance: DIMENHYDRINATE
     Indication: NAUSEA
     Dosage: UNK
     Route: 065
     Dates: start: 20210401, end: 20210413
  31. SMOFKABIVEN [Concomitant]
     Active Substance: AMINO ACIDS\DEXTROSE\ELECTROLYTES NOS\SOYBEAN OIL
     Indication: PARENTERAL NUTRITION
     Dosage: UNK
     Route: 065
     Dates: start: 20210330, end: 20210331
  32. SMOFKABIVEN [Concomitant]
     Active Substance: AMINO ACIDS\DEXTROSE\ELECTROLYTES NOS\SOYBEAN OIL
     Dosage: UNK
     Route: 065
     Dates: start: 20210402, end: 20210403
  33. NADROPARIN CALCIUM [Concomitant]
     Active Substance: NADROPARIN CALCIUM
     Indication: ISCHAEMIA
     Dosage: UNK
     Route: 065
     Dates: start: 20210331, end: 20210331
  34. ACICLOVIR [Concomitant]
     Active Substance: ACYCLOVIR
     Dosage: UNK
     Route: 065
     Dates: start: 20210330, end: 20210331
  35. PREDNISOLONE. [Concomitant]
     Active Substance: PREDNISOLONE
     Indication: DRUG HYPERSENSITIVITY
     Dosage: UNK
     Route: 065
     Dates: start: 20210402, end: 20210402
  36. CLEXANE [Concomitant]
     Active Substance: ENOXAPARIN SODIUM
     Indication: THROMBOSIS PROPHYLAXIS
     Dosage: UNK
     Route: 065
     Dates: start: 20210331, end: 20210402
  37. SODIUM CHLORIDE. [Concomitant]
     Active Substance: SODIUM CHLORIDE
     Indication: DYSPNOEA
     Dosage: UNK
     Route: 065
     Dates: start: 20210401, end: 20210404
  38. BIFITERAL [Concomitant]
     Active Substance: LACTULOSE
     Indication: CONSTIPATION
     Dosage: UNK
     Route: 065
     Dates: start: 20210401, end: 20210413
  39. NORADRENALIN [Concomitant]
     Active Substance: NOREPINEPHRINE\NOREPINEPHRINE BITARTRATE
     Indication: CARDIOVASCULAR INSUFFICIENCY
     Dosage: UNK
     Route: 065
     Dates: start: 20210402, end: 20210404
  40. FRESUBIN ENERGY [Concomitant]
     Indication: DECREASED APPETITE
     Dosage: UNK
     Route: 065
     Dates: start: 20210324, end: 20210330
  41. ADDEL N [Concomitant]
     Active Substance: UNSPECIFIED INGREDIENT
     Dosage: UNK
     Route: 065
     Dates: start: 20210402, end: 20210402
  42. ACICLOVIR [Concomitant]
     Active Substance: ACYCLOVIR
     Indication: ANTIVIRAL PROPHYLAXIS
     Dosage: UNK
     Route: 065
     Dates: start: 20210324, end: 20210329
  43. POTASSIUM CHLORIDE. [Concomitant]
     Active Substance: POTASSIUM CHLORIDE
     Indication: HYPOKALAEMIA
     Dosage: 50 MMOL
     Route: 065
     Dates: start: 20210402, end: 20210404
  44. FREKAVIT FETTLOESLICH [Concomitant]
     Active Substance: .ALPHA.-TOCOPHEROL\ERGOCALCIFEROL\PHYTONADIONE\VITAMIN A
     Indication: PARENTERAL NUTRITION
     Dosage: UNK
     Route: 065
     Dates: start: 20210330, end: 20210330
  45. ENOXAPARIN [Concomitant]
     Active Substance: ENOXAPARIN
     Indication: THROMBOSIS PROPHYLAXIS
     Dosage: UNK
     Route: 065
     Dates: start: 20210330, end: 20210330
  46. CLEXANE [Concomitant]
     Active Substance: ENOXAPARIN SODIUM
     Dosage: UNK
     Route: 065
     Dates: start: 20210405, end: 20210412
  47. SEVREDOL [Concomitant]
     Active Substance: MORPHINE
     Indication: PAIN
     Dosage: UNK
     Route: 065
     Dates: start: 20210401, end: 20210413
  48. DABRAFENIB [Suspect]
     Active Substance: DABRAFENIB
     Indication: COLORECTAL CANCER
     Dosage: UNK
     Route: 048
     Dates: start: 20210316
  49. PARACETAMOL [Concomitant]
     Active Substance: ACETAMINOPHEN
     Dosage: UNK
     Route: 065
     Dates: start: 20210402, end: 20210404
  50. ELEKTROLYT 153 [Concomitant]
     Indication: HYPOTENSION
     Dosage: UNK
     Route: 065
     Dates: start: 20210404, end: 20210404
  51. PREDNISOLONE. [Concomitant]
     Active Substance: PREDNISOLONE
     Indication: CARDIOVASCULAR INSUFFICIENCY
     Dosage: UNK
     Route: 065
     Dates: start: 20210330, end: 20210330
  52. ADDEL N [Concomitant]
     Active Substance: UNSPECIFIED INGREDIENT
     Indication: PARENTERAL NUTRITION
     Dosage: UNK
     Route: 065
     Dates: start: 20210330, end: 20210330
  53. PANTOPRAZOL [Concomitant]
     Active Substance: PANTOPRAZOLE SODIUM
     Indication: PROPHYLAXIS
     Dosage: UNK
     Route: 065
     Dates: start: 20210331, end: 20210402
  54. FENISTIL [Concomitant]
     Active Substance: DIMETHINDENE
     Indication: COUGH
     Dosage: UNK
     Route: 065
     Dates: start: 20210316, end: 20210316
  55. PARACETAMOL [Concomitant]
     Active Substance: ACETAMINOPHEN
     Dosage: UNK
     Route: 065
     Dates: start: 20210401, end: 20210413
  56. AKRINOR [Concomitant]
     Active Substance: CAFEDRINE HYDROCHLORIDE\THEODRENALINE
     Indication: CARDIOVASCULAR INSUFFICIENCY
     Dosage: UNK
     Route: 065
     Dates: start: 20210402, end: 20210402
  57. PETHIDIN [Concomitant]
     Active Substance: MEPERIDINE
     Indication: PAIN
     Dosage: UNK
     Route: 065
     Dates: start: 20210401, end: 20210401

REACTIONS (1)
  - Abdominal infection [Recovered/Resolved]

NARRATIVE: CASE EVENT DATE: 20210327
